FAERS Safety Report 10108879 (Version 1)
Quarter: 2014Q2

REPORT INFORMATION
  Report Type: Spontaneous
  Country: US (occurrence: None)
  Receive Date: 20140423
  Receipt Date: 20140423
  Transmission Date: 20141212
  Serious: Yes (Other)
  Sender: FDA-Public Use
  Company Number: AUR-APL-2014-04791

PATIENT
  Age: 32 Year
  Sex: Male

DRUGS (2)
  1. SIMVASTATIN (SIMVASTATIN) [Suspect]
  2. LINEZOLID [Suspect]
     Indication: ENTEROCOCCAL INFECTION

REACTIONS (2)
  - Lactic acidosis [None]
  - Toxicity to various agents [None]
